FAERS Safety Report 4444257-X (Version None)
Quarter: 2004Q3

REPORT INFORMATION
  Report Type: 
  Country: None (occurrence: None)
  Receive Date: 20040812
  Receipt Date: 20031216
  Transmission Date: 20050211
  Serious: Yes (Hospitalization, Other)
  Sender: FDA-Public Use
  Company Number: USA030332304

PATIENT
  Age: 76 Year
  Sex: Male
  Weight: 80 kg

DRUGS (4)
  1. HUMALOG [Suspect]
     Indication: DIABETES MELLITUS
     Dosage: 16 U/DAY
     Dates: end: 20031216
  2. INSULIN [Suspect]
     Indication: DIABETES MELLITUS
     Dates: start: 19450101
  3. LANTUS [Concomitant]
  4. NOVOLOG [Concomitant]

REACTIONS (7)
  - DIARRHOEA [None]
  - DIFFICULTY IN WALKING [None]
  - HYPERGLYCAEMIA [None]
  - HYPOGLYCAEMIA [None]
  - MYOCARDIAL INFARCTION [None]
  - SCAR [None]
  - VOMITING [None]
